FAERS Safety Report 4552332-4 (Version None)
Quarter: 2005Q1

REPORT INFORMATION
  Report Type: 
  Country: None (occurrence: None)
  Receive Date: 20050114
  Receipt Date: 20040205
  Transmission Date: 20050727
  Serious: No
  Sender: FDA-Public Use
  Company Number: US-GLAXOSMITHKLINE-A0496788A

PATIENT
  Sex: Female

DRUGS (6)
  1. IMITREX [Suspect]
     Indication: MIGRAINE
     Dosage: 6MG FOUR TIMES PER DAY
     Route: 058
     Dates: start: 20040129
  2. WELLBUTRIN SR [Suspect]
  3. LOTRONEX [Suspect]
  4. FIORICET [Suspect]
  5. PROZAC [Suspect]
  6. STRATTERA [Suspect]

REACTIONS (2)
  - DIZZINESS [None]
  - FALL [None]
